FAERS Safety Report 8352403-0 (Version None)
Quarter: 2012Q2

REPORT INFORMATION
  Report Type: 
  Country: None (occurrence: None)
  Receive Date: 20120511
  Receipt Date: 20120508
  Transmission Date: 20120825
  Serious: Yes (Hospitalization)
  Sender: FDA-Public Use
  Company Number: JP-PFIZER INC-2012077498

PATIENT
  Age: 78 Year
  Sex: Female
  Weight: 60 kg

DRUGS (5)
  1. TEMSIROLIMUS [Suspect]
     Indication: METASTATIC RENAL CELL CARCINOMA
     Dosage: 25 MG, WEEKLY
     Route: 042
     Dates: start: 20110822
  2. AMLODIPINE [Concomitant]
     Dosage: 5 MG, 1X/DAY
     Route: 048
  3. ALLOPURINOL [Concomitant]
     Dosage: 300 MG, 1X/DAY
     Route: 048
  4. ADALAT [Concomitant]
     Dosage: 20 MG, 1X/DAY
     Route: 048
  5. CANDESARTAN CILEXETIL AND HYDROCHLOROTHIAZIDE [Concomitant]
     Route: 048

REACTIONS (1)
  - FRACTURE [None]
